FAERS Safety Report 11403962 (Version 1)
Quarter: 2015Q3

REPORT INFORMATION
  Report Type: Spontaneous
  Country: US (occurrence: None)
  Receive Date: 20150820
  Receipt Date: 20150820
  Transmission Date: 20151125
  Serious: Yes (Disabling)
  Sender: FDA-Public Use
  Company Number: None

PATIENT
  Age: 61 Year
  Sex: Male
  Weight: 104.33 kg

DRUGS (18)
  1. FENOFIBRATE. [Concomitant]
     Active Substance: FENOFIBRATE
  2. PLAVIX [Concomitant]
     Active Substance: CLOPIDOGREL BISULFATE
  3. LEVOTHYROXINE. [Concomitant]
     Active Substance: LEVOTHYROXINE
  4. ISOSORBIDE. [Concomitant]
     Active Substance: ISOSORBIDE
  5. CARVEDILOL. [Concomitant]
     Active Substance: CARVEDILOL
  6. CRESTOR [Concomitant]
     Active Substance: ROSUVASTATIN CALCIUM
  7. RANEXA [Concomitant]
     Active Substance: RANOLAZINE
  8. FINASTRIDE [Concomitant]
     Active Substance: FINASTERIDE
  9. INVOKANA [Suspect]
     Active Substance: CANAGLIFLOZIN
     Indication: DIABETES MELLITUS
     Route: 048
     Dates: start: 20141006, end: 20141229
  10. GLIPIZIDE. [Concomitant]
     Active Substance: GLIPIZIDE
  11. LEVEMIR [Concomitant]
     Active Substance: INSULIN DETEMIR
  12. OMEPRAZOLE. [Concomitant]
     Active Substance: OMEPRAZOLE
  13. NTG [Concomitant]
     Active Substance: NITROGLYCERIN
  14. VITAMIN D [Concomitant]
     Active Substance: CHOLECALCIFEROL
  15. LOVAZA [Concomitant]
     Active Substance: OMEGA-3-ACID ETHYL ESTERS
  16. ASPIRIN. [Concomitant]
     Active Substance: ASPIRIN
  17. MULTIVITAMIN [Concomitant]
     Active Substance: VITAMINS
  18. TAMULOSIN [Concomitant]
     Active Substance: TAMSULOSIN

REACTIONS (3)
  - Blood creatinine increased [None]
  - Renal injury [None]
  - Glomerular filtration rate decreased [None]

NARRATIVE: CASE EVENT DATE: 20141128
